FAERS Safety Report 5837025-5 (Version None)
Quarter: 2008Q3

REPORT INFORMATION
  Report Type: 
  Country: None (occurrence: None)
  Receive Date: 20080807
  Receipt Date: 20070806
  Transmission Date: 20090109
  Serious: No
  Sender: FDA-Public Use
  Company Number: US-BRISTOL-MYERS SQUIBB COMPANY-13868682

PATIENT
  Sex: Male
  Weight: 102 kg

DRUGS (4)
  1. GLUCOVANCE [Suspect]
     Dosage: 2.5/500 MG; DOSE INCREASED TO 5/500MG ON 26-JUL-2007
     Route: 048
     Dates: start: 20020901, end: 20070726
  2. PRINIVIL [Concomitant]
  3. ASPIRIN [Concomitant]
  4. METFORMIN HCL [Concomitant]

REACTIONS (1)
  - BLOOD GLUCOSE FLUCTUATION [None]
